FAERS Safety Report 12939584 (Version 3)
Quarter: 2016Q4

REPORT INFORMATION
  Report Type: Spontaneous
  Country: BR (occurrence: BR)
  Receive Date: 20161115
  Receipt Date: 20161124
  Transmission Date: 20170207
  Serious: Yes (Death, Hospitalization)
  Sender: FDA-Public Use
  Company Number: BR-B.I. PHARMACEUTICALS,INC./RIDGEFIELD-2016-BI-077475

PATIENT
  Age: 72 Year
  Sex: Female

DRUGS (4)
  1. AMIODARONA [Concomitant]
     Active Substance: AMIODARONE
     Indication: ATRIAL FIBRILLATION
     Route: 048
     Dates: start: 2012, end: 20161026
  2. NAPREXENO [Concomitant]
     Indication: HYPERTENSION
     Route: 048
     Dates: end: 20161026
  3. PRADAXA [Suspect]
     Active Substance: DABIGATRAN ETEXILATE MESYLATE
     Indication: ATRIAL FIBRILLATION
     Route: 048
     Dates: start: 2012, end: 20161026
  4. SERETIDE [Concomitant]
     Active Substance: FLUTICASONE PROPIONATE\SALMETEROL XINAFOATE
     Indication: ASTHMA
     Dosage: AEROSOL
     Route: 055
     Dates: end: 20161026

REACTIONS (3)
  - Cardiac arrest [Fatal]
  - Procedural complication [Fatal]
  - Aortic thrombosis [Fatal]

NARRATIVE: CASE EVENT DATE: 20161026
